FAERS Safety Report 8561008-8 (Version None)
Quarter: 2012Q3

REPORT INFORMATION
  Report Type: 
  Country: None (occurrence: None)
  Receive Date: 20120802
  Receipt Date: 20110721
  Transmission Date: 20120928
  Serious: No
  Sender: FDA-Public Use
  Company Number: US-BRISTOL-MYERS SQUIBB COMPANY-15541469

PATIENT
  Age: 48 Year
  Sex: Male

DRUGS (4)
  1. RITONAVIR [Suspect]
  2. ABACAVIR [Suspect]
  3. REYATAZ [Suspect]
     Indication: HIV INFECTION
     Route: 048
     Dates: start: 20061228
  4. TENOFOVIR DISOPROXIL FUMARATE [Suspect]

REACTIONS (1)
  - NEPHROLITHIASIS [None]
